FAERS Safety Report 7331746-3 (Version None)
Quarter: 2011Q1

REPORT INFORMATION
  Report Type: 
  Country: None (occurrence: None)
  Receive Date: 20110304
  Receipt Date: 20110304
  Transmission Date: 20110831
  Serious: Yes (Death, Hospitalization)
  Sender: FDA-Public Use
  Company Number: PHHO2008IL08718

PATIENT
  Sex: Male
  Weight: 60 kg

DRUGS (2)
  1. PLACEBO [Suspect]
     Indication: CARCINOID TUMOUR
     Dosage: PLACEBO
     Dates: start: 20080413, end: 20080708
  2. SANDOSTATIN LAR [Suspect]
     Indication: CARCINOID SYNDROME
     Dosage: UNK
     Dates: start: 20080413, end: 20080708

REACTIONS (6)
  - CONCOMITANT DISEASE PROGRESSION [None]
  - CARCINOID SYNDROME [None]
  - TRICUSPID VALVE INCOMPETENCE [None]
  - CARDIAC DISORDER [None]
  - CARDIAC FAILURE CONGESTIVE [None]
  - NEOPLASM MALIGNANT [None]
